FAERS Safety Report 14305704 (Version 1)
Quarter: 2017Q4

REPORT INFORMATION
  Report Type: Spontaneous
  Country: US (occurrence: US)
  Receive Date: 20171219
  Receipt Date: 20171219
  Transmission Date: 20180321
  Serious: No
  Sender: FDA-Public Use
  Company Number: US-MYLANLABS-2017M1077006

PATIENT
  Age: 68 Year
  Sex: Female

DRUGS (1)
  1. ROWASA [Suspect]
     Active Substance: MESALAMINE
     Dosage: UNK, ONCE
     Route: 054
     Dates: start: 20171202

REACTIONS (2)
  - Expired product administered [Unknown]
  - Diarrhoea [Recovered/Resolved]

NARRATIVE: CASE EVENT DATE: 20171203
